FAERS Safety Report 18579396 (Version 1)
Quarter: 2020Q4

REPORT INFORMATION
  Report Type: Spontaneous
  Country: US (occurrence: US)
  Receive Date: 20201204
  Receipt Date: 20201204
  Transmission Date: 20210114
  Serious: No
  Sender: FDA-Public Use
  Company Number: US-UNITED THERAPEUTICS-UNT-2020-018673

PATIENT
  Age: 62 Year
  Sex: Male

DRUGS (2)
  1. REMODULIN [Suspect]
     Active Substance: TREPROSTINIL
     Indication: PULMONARY ARTERIAL HYPERTENSION
     Dosage: UNK, CONTINUING
     Route: 058
     Dates: start: 20171122
  2. REMODULIN [Suspect]
     Active Substance: TREPROSTINIL
     Dosage: 0.07395 ?G/KG, CONTINUING
     Route: 058

REACTIONS (4)
  - Infusion site extravasation [Unknown]
  - Respiration abnormal [Unknown]
  - Dizziness [Unknown]
  - Flushing [Unknown]

NARRATIVE: CASE EVENT DATE: 20201125
